FAERS Safety Report 7949742-1 (Version None)
Quarter: 2011Q4

REPORT INFORMATION
  Report Type: 
  Country: None (occurrence: None)
  Receive Date: 20111130
  Receipt Date: 20111122
  Transmission Date: 20120403
  Serious: Yes (Disabling)
  Sender: FDA-Public Use
  Company Number: PHHY2011GB102215

PATIENT
  Sex: Female
  Weight: 89 kg

DRUGS (2)
  1. LEFLUNOMIDE [Suspect]
     Dosage: UNK
     Dates: start: 20100301
  2. HUMIRA [Suspect]
     Indication: RHEUMATOID ARTHRITIS
     Dosage: UNK
     Dates: start: 20100301

REACTIONS (2)
  - PULMONARY SARCOIDOSIS [None]
  - DYSPNOEA [None]
